FAERS Safety Report 6253401-3 (Version None)
Quarter: 2009Q3

REPORT INFORMATION
  Report Type: 
  Country: None (occurrence: None)
  Receive Date: 20090701
  Receipt Date: 20090527
  Transmission Date: 20100115
  Serious: Yes (Other)
  Sender: FDA-Public Use
  Company Number: SE-BAYER-200923692GPV

PATIENT
  Age: 81 Year
  Sex: Male

DRUGS (2)
  1. KETOPROFEN [Suspect]
     Indication: DRUG USE FOR UNKNOWN INDICATION
  2. DEXIBUPROFEN [Suspect]
     Indication: DRUG USE FOR UNKNOWN INDICATION

REACTIONS (1)
  - PETECHIAE [None]
